FAERS Safety Report 8832865 (Version 1)
Quarter: 2012Q4

REPORT INFORMATION
  Report Type: 
  Country: US (occurrence: None)
  Receive Date: 20121009
  Receipt Date: 20121009
  Transmission Date: 20130627
  Serious: Yes (Hospitalization)
  Sender: FDA-Public Use
  Company Number: None

PATIENT
  Sex: Male
  Weight: 87.1 kg

DRUGS (1)
  1. ALFA2 INTERFERON 2B (INTRON-A) 1342 MG [Suspect]

REACTIONS (3)
  - Psychotic disorder [None]
  - Affective disorder [None]
  - Cognitive disorder [None]
